FAERS Safety Report 14149111 (Version 1)
Quarter: 2017Q4

REPORT INFORMATION
  Report Type: Spontaneous
  Country: US (occurrence: None)
  Receive Date: 20171101
  Receipt Date: 20171101
  Transmission Date: 20180321
  Serious: No
  Sender: FDA-Public Use
  Company Number: None

PATIENT
  Age: 65 Year
  Sex: Female
  Weight: 65.32 kg

DRUGS (9)
  1. GLIPIZIDE-METFORMIN 5MG/500MG TABS [Suspect]
     Active Substance: GLIPIZIDE\METFORMIN HYDROCHLORIDE
     Indication: HYPERTENSION
     Route: 048
     Dates: start: 20170728, end: 21070809
  2. ATORVASTATIN [Concomitant]
     Active Substance: ATORVASTATIN
  3. NIFEDIPINE. [Suspect]
     Active Substance: NIFEDIPINE
  4. NIFEDIPINE. [Suspect]
     Active Substance: NIFEDIPINE
  5. ASPIRIN. [Concomitant]
     Active Substance: ASPIRIN
  6. OMEPRAZOLE. [Concomitant]
     Active Substance: OMEPRAZOLE
  7. GLIPIZIDE-METFORMIN 5MG/500MG TABS [Suspect]
     Active Substance: GLIPIZIDE\METFORMIN HYDROCHLORIDE
     Indication: DIABETES MELLITUS
     Route: 048
     Dates: start: 20170728, end: 21070809
  8. IBUPROFEN. [Concomitant]
     Active Substance: IBUPROFEN
  9. BENADRYL [Concomitant]
     Active Substance: DIPHENHYDRAMINE HYDROCHLORIDE

REACTIONS (10)
  - Nasopharyngitis [None]
  - Oropharyngeal pain [None]
  - Pruritus [None]
  - Asthenia [None]
  - Fatigue [None]
  - Skin burning sensation [None]
  - Headache [None]
  - Eye pain [None]
  - Nasal congestion [None]
  - Myalgia [None]

NARRATIVE: CASE EVENT DATE: 20170809
